FAERS Safety Report 5127629-X (Version None)
Quarter: 2006Q4

REPORT INFORMATION
  Report Type: 
  Country: None (occurrence: None)
  Receive Date: 20061011
  Receipt Date: 20060927
  Transmission Date: 20070319
  Serious: Yes (Death, Other)
  Sender: FDA-Public Use
  Company Number: GXKR2006DE06009

PATIENT
  Age: 3 Year
  Sex: Male

DRUGS (4)
  1. DIPHENHYDRAMINE HCL [Suspect]
     Indication: SEDATION
  2. MIDAZOLAM HCL [Concomitant]
  3. THIOPENTAL SODIUM [Concomitant]
  4. PENTOBARBITAL CAP [Concomitant]

REACTIONS (3)
  - DRUG LEVEL INCREASED [None]
  - SUBDURAL HAEMATOMA [None]
  - VICTIM OF CHILD ABUSE [None]
